FAERS Safety Report 5524494-3 (Version None)
Quarter: 2007Q4

REPORT INFORMATION
  Report Type: 
  Country: None (occurrence: None)
  Receive Date: 20071122
  Receipt Date: 20071116
  Transmission Date: 20080405
  Serious: Yes (Hospitalization)
  Sender: FDA-Public Use
  Company Number: PHRM2007FR02601

PATIENT
  Age: 34 Year
  Sex: Female

DRUGS (2)
  1. SOLU-MEDROL [Concomitant]
     Indication: ASTHMA
     Dosage: 20 TO 30 MG/DAY
  2. ZOMETA [Suspect]
     Route: 042
     Dates: start: 20060501, end: 20060501

REACTIONS (3)
  - ASTHMA [None]
  - DYSPNOEA [None]
  - FORCED EXPIRATORY VOLUME DECREASED [None]
